FAERS Safety Report 5665139-1 (Version None)
Quarter: 2008Q1

REPORT INFORMATION
  Report Type: 
  Country: None (occurrence: None)
  Receive Date: 20080314
  Receipt Date: 20080307
  Transmission Date: 20080703
  Serious: Yes (Hospitalization)
  Sender: FDA-Public Use
  Company Number: GB-MERCK-0607GBR00101

PATIENT
  Age: 70 Year
  Sex: Female

DRUGS (4)
  1. FOSAMAX [Suspect]
     Indication: OSTEOPOROSIS
     Route: 048
     Dates: start: 19980101
  2. RISEDRONATE SODIUM [Suspect]
     Indication: OSTEOPOROSIS
     Route: 048
     Dates: start: 20000101
  3. [THERAPY UNSPECIFIED] [Concomitant]
     Indication: BLOOD CHOLESTEROL INCREASED
     Route: 065
     Dates: start: 20000101
  4. LEVOTHYROXINE SODIUM [Concomitant]
     Indication: HYPOTHYROIDISM
     Route: 065
     Dates: start: 19800101

REACTIONS (12)
  - BLOOD IRON DECREASED [None]
  - BLOOD THYROID STIMULATING HORMONE DECREASED [None]
  - BRUXISM [None]
  - EDENTULOUS [None]
  - JAW DISORDER [None]
  - MELANOCYTIC NAEVUS [None]
  - MITRAL VALVE PROLAPSE [None]
  - OSTEONECROSIS [None]
  - ROAD TRAFFIC ACCIDENT [None]
  - TRANSFERRIN SATURATION DECREASED [None]
  - TRAUMATIC ULCER [None]
  - WHIPLASH INJURY [None]
